FAERS Safety Report 6468780-1 (Version None)
Quarter: 2009Q4

REPORT INFORMATION
  Report Type: 
  Country: None (occurrence: None)
  Receive Date: 20091203
  Receipt Date: 20080821
  Transmission Date: 20100525
  Serious: Yes (Hospitalization)
  Sender: FDA-Public Use
  Company Number: US-ELI_LILLY_AND_COMPANY-US200609002257

PATIENT
  Sex: Female
  Weight: 58.503 kg

DRUGS (15)
  1. TERIPARATIDE [Suspect]
     Indication: OSTEOPOROSIS
     Dosage: 20 UG, DAILY (1/D)
     Route: 058
     Dates: start: 20060804
  2. CYMBALTA [Concomitant]
     Indication: ANTIDEPRESSANT THERAPY
     Dosage: UNK, UNK
     Dates: start: 20040301
  3. IMURAN [Concomitant]
     Indication: SCLERODERMA
     Dosage: UNK, UNK
     Dates: start: 20040301
  4. PREDNISONE [Concomitant]
     Indication: SCLERODERMA
     Dosage: UNK, UNK
     Dates: start: 20040301
  5. PREMPRO [Concomitant]
     Indication: HORMONE REPLACEMENT THERAPY
     Dosage: UNK, UNK
     Dates: start: 19780301
  6. PROTONIX [Concomitant]
     Indication: GASTROOESOPHAGEAL REFLUX DISEASE
     Dosage: UNK, UNK
     Dates: start: 20020401
  7. VICODIN [Concomitant]
     Indication: PAIN
     Dosage: UNK, UNK
     Dates: start: 20060101
  8. FLEXERIL [Concomitant]
     Indication: MUSCULOSKELETAL DISCOMFORT
     Dosage: UNK, UNK
     Dates: start: 20001101
  9. COLACE [Concomitant]
     Indication: CONSTIPATION
     Dosage: UNK, UNK
     Dates: start: 19800101
  10. DARVOCET-N 100 [Concomitant]
     Indication: PAIN
     Dosage: UNK, UNK
     Dates: start: 20011101
  11. PLAVIX [Concomitant]
     Indication: MITRAL VALVE PROLAPSE
     Dates: start: 20050301
  12. CALCIUM [Concomitant]
     Dates: start: 19990101
  13. ANTACID TAB [Concomitant]
     Dates: start: 20050101
  14. VITAMIN D [Concomitant]
     Dates: start: 19950101
  15. ESTROGEN NOS [Concomitant]
     Dates: start: 19780101

REACTIONS (1)
  - PRESYNCOPE [None]
